FAERS Safety Report 19957118 (Version 2)
Quarter: 2022Q4

REPORT INFORMATION
  Report Type: Report from Study
  Country: DE (occurrence: DE)
  Receive Date: 20211014
  Receipt Date: 20221020
  Transmission Date: 20230113
  Serious: Yes (Other)
  Sender: FDA-Public Use
  Company Number: DE-TAKEDA-2021TUS061764

PATIENT
  Sex: Female

DRUGS (7)
  1. PARATHYROID HORMONE [Suspect]
     Active Substance: PARATHYROID HORMONE
     Indication: Hypoparathyroidism
     Dosage: 50 MICROGRAM, QD
     Route: 065
     Dates: start: 20171130
  2. PARATHYROID HORMONE [Suspect]
     Active Substance: PARATHYROID HORMONE
     Indication: Hypoparathyroidism
     Dosage: 50 MICROGRAM, QD
     Route: 065
     Dates: start: 20171130
  3. PARATHYROID HORMONE [Suspect]
     Active Substance: PARATHYROID HORMONE
     Indication: Hypoparathyroidism
     Dosage: 50 MICROGRAM, QD
     Route: 065
     Dates: start: 20171130
  4. Kalinor [Concomitant]
     Indication: Diuretic therapy
     Dosage: UNK
     Route: 048
     Dates: start: 20120319, end: 20201105
  5. SIMVASTATIN [Concomitant]
     Active Substance: SIMVASTATIN
     Indication: Lipids increased
     Dosage: UNK
     Route: 048
     Dates: start: 20160212
  6. ESCITALOPRAM [Concomitant]
     Active Substance: ESCITALOPRAM OXALATE
     Indication: Sedation
     Dosage: UNK
     Route: 048
     Dates: start: 20171101
  7. ASPIRIN [Concomitant]
     Active Substance: ASPIRIN
     Indication: Anticoagulant therapy
     Dosage: UNK
     Route: 048
     Dates: start: 20150610

REACTIONS (1)
  - Oesophageal dilatation [Recovered/Resolved]

NARRATIVE: CASE EVENT DATE: 20210907
